FAERS Safety Report 11366113 (Version 1)
Quarter: 2015Q3

REPORT INFORMATION
  Report Type: Spontaneous
  Country: GB (occurrence: GB)
  Receive Date: 20150811
  Receipt Date: 20150811
  Transmission Date: 20151125
  Serious: Yes (Hospitalization)
  Sender: FDA-Public Use
  Company Number: GB-BANPHARM-20154095

PATIENT
  Age: 63 Year
  Sex: Male

DRUGS (24)
  1. METFORMIN [Suspect]
     Active Substance: METFORMIN HYDROCHLORIDE
     Indication: DIABETES MELLITUS
     Dosage: DF 1G, BID,
     Route: 048
  2. DOCUSATE [Concomitant]
     Active Substance: DOCUSATE
  3. EXENATIDE [Concomitant]
     Active Substance: EXENATIDE
  4. GABAPENTIN. [Concomitant]
     Active Substance: GABAPENTIN
  5. SENNA [Concomitant]
     Active Substance: SENNA LEAF\SENNOSIDES\SENNOSIDES A AND B
  6. TIOTROPIUM [Concomitant]
     Active Substance: TIOTROPIUM
  7. FEXOFENADINE [Concomitant]
     Active Substance: FEXOFENADINE\FEXOFENADINE HYDROCHLORIDE
  8. HYDROMOL EMOLLIENT [Concomitant]
  9. ATORVASTAN [Concomitant]
  10. PARACETAMOL [Concomitant]
     Active Substance: ACETAMINOPHEN
  11. SALBUTAMOL [Concomitant]
     Active Substance: ALBUTEROL
  12. IBUPROFEN UNKNOWN PRODUCT [Suspect]
     Active Substance: IBUPROFEN
     Indication: PAIN
     Dosage: DF 400 MG, PRN,
     Route: 048
  13. ALLOPURINOL. [Suspect]
     Active Substance: ALLOPURINOL
     Indication: GOUT
     Dosage: DF 300MG, QD,
     Route: 048
  14. LOSARTAN. [Suspect]
     Active Substance: LOSARTAN
     Dosage: DF 50MG, QD,
     Route: 048
  15. CYCLIZINE [Concomitant]
     Active Substance: CYCLIZINE
  16. ASPIRIN. [Concomitant]
     Active Substance: ASPIRIN
  17. MOVICOL [Concomitant]
     Active Substance: POLYETHYLENE GLYCOL 3350\POTASSIUM CHLORIDE\SODIUM BICARBONATE\SODIUM CHLORIDE
  18. ONDANSETRON [Concomitant]
     Active Substance: ONDANSETRON
  19. CODEINE [Concomitant]
     Active Substance: CODEINE
  20. FYBOGEL [Concomitant]
     Active Substance: PLANTAGO OVATA SEED
  21. INSULIN ISOPHANE HUMAN (PRB) [Concomitant]
  22. OXYCODON [Concomitant]
     Active Substance: OXYCODONE
  23. SERETIDE [Concomitant]
     Active Substance: FLUTICASONE FUROATE\SALMETEROL XINAFOATE
  24. ACIDEX [Concomitant]
     Active Substance: CALCIUM CARBONATE\SODIUM ALGINATE\SODIUM BICARBONATE

REACTIONS (2)
  - Hyperkalaemia [Recovered/Resolved]
  - Acute kidney injury [Recovered/Resolved]
